FAERS Safety Report 8816875 (Version 1)
Quarter: 2012Q4

REPORT INFORMATION
  Report Type: Spontaneous
  Country: US (occurrence: None)
  Receive Date: 20121002
  Receipt Date: 20121002
  Transmission Date: 20130627
  Serious: Yes (Hospitalization)
  Sender: FDA-Public Use
  Company Number: DSA_59887_2012

PATIENT
  Sex: Female

DRUGS (2)
  1. XENAZINE 25 MG (NOT SPECIFIED) [Suspect]
     Indication: HUNTINGTON^S DISEASE
     Route: 048
     Dates: start: 20120920
  2. XENAZINE 25 MG (NOT SPECIFIED) [Suspect]
     Indication: HUNTINGTON^S DISEASE
     Route: 048
     Dates: start: 2012, end: 20120920

REACTIONS (3)
  - Pyrexia [None]
  - Convulsion [None]
  - Mental status changes [None]
